FAERS Safety Report 9872837 (Version 3)
Quarter: 2014Q2

REPORT INFORMATION
  Report Type: Spontaneous
  Country: JP (occurrence: JP)
  Receive Date: 20140206
  Receipt Date: 20140507
  Transmission Date: 20141212
  Serious: Yes (Hospitalization, Other)
  Sender: FDA-Public Use
  Company Number: JP-ROCHE-1343251

PATIENT
  Age: 84 Year
  Sex: Female
  Weight: 39 kg

DRUGS (3)
  1. BONVIVA [Suspect]
     Indication: OSTEOPOROSIS
     Route: 042
     Dates: start: 20131230, end: 20140127
  2. ALOSITOL [Suspect]
     Indication: HYPERURICAEMIA
     Route: 048
     Dates: start: 20131226, end: 20140106
  3. PREDONINE [Concomitant]
     Indication: ANTI-NEUTROPHIL CYTOPLASMIC ANTIBODY POSITIVE VASCULITIS
     Dosage: DOSAGE IS UNCERTAIN.
     Route: 048
     Dates: start: 20131228

REACTIONS (1)
  - Platelet count decreased [Recovered/Resolved]
